FAERS Safety Report 9426013 (Version 2)
Quarter: 2013Q3

REPORT INFORMATION
  Report Type: Spontaneous
  Country: FR (occurrence: FR)
  Receive Date: 20130730
  Receipt Date: 20130926
  Transmission Date: 20140515
  Serious: Yes (Other)
  Sender: FDA-Public Use
  Company Number: FR-ASTRAZENECA-2013SE55177

PATIENT
  Age: 19595 Day
  Sex: Male
  Weight: 76 kg

DRUGS (2)
  1. NAROPEINE [Suspect]
     Indication: LOCAL ANAESTHESIA
     Route: 053
     Dates: start: 20071226, end: 20071226
  2. AUGMENTIN [Concomitant]

REACTIONS (1)
  - Optic ischaemic neuropathy [Not Recovered/Not Resolved]
